FAERS Safety Report 14539461 (Version 2)
Quarter: 2018Q2

REPORT INFORMATION
  Report Type: Spontaneous
  Country: IT (occurrence: IT)
  Receive Date: 20180216
  Receipt Date: 20180622
  Transmission Date: 20180711
  Serious: Yes (Other)
  Sender: FDA-Public Use
  Company Number: IT-WEST-WARD PHARMACEUTICALS CORP.-IT-H14001-18-01070

PATIENT
  Age: 5 Year
  Sex: Female

DRUGS (13)
  1. VINCRISTINE [Suspect]
     Active Substance: VINCRISTINE
     Indication: NEPHROBLASTOMA
     Dosage: CYCLICAL
     Route: 042
  2. BEVACIZUMAB. [Suspect]
     Active Substance: BEVACIZUMAB
     Indication: NEPHROBLASTOMA
     Dosage: CYCLICAL
     Route: 042
  3. VINCRISTINE [Suspect]
     Active Substance: VINCRISTINE
     Indication: METASTASES TO LIVER
  4. CEFIXIME. [Concomitant]
     Active Substance: CEFIXIME
     Indication: PROPHYLAXIS
     Dosage: CYCLICAL
     Route: 048
  5. IRINOTECAN HYDROCHLORIDE. [Suspect]
     Active Substance: IRINOTECAN HYDROCHLORIDE
     Indication: NEPHROBLASTOMA
     Dosage: CYCLICAL
     Route: 042
  6. BEVACIZUMAB. [Suspect]
     Active Substance: BEVACIZUMAB
     Indication: METASTASES TO LUNG
  7. IRINOTECAN HYDROCHLORIDE. [Suspect]
     Active Substance: IRINOTECAN HYDROCHLORIDE
     Indication: METASTASES TO PERITONEUM
  8. VINCRISTINE [Suspect]
     Active Substance: VINCRISTINE
     Indication: METASTASES TO LUNG
  9. IRINOTECAN HYDROCHLORIDE. [Suspect]
     Active Substance: IRINOTECAN HYDROCHLORIDE
     Indication: METASTASES TO LUNG
  10. IRINOTECAN HYDROCHLORIDE. [Suspect]
     Active Substance: IRINOTECAN HYDROCHLORIDE
     Indication: METASTASES TO LIVER
  11. BEVACIZUMAB. [Suspect]
     Active Substance: BEVACIZUMAB
     Indication: METASTASES TO LIVER
  12. BEVACIZUMAB. [Suspect]
     Active Substance: BEVACIZUMAB
     Indication: METASTASES TO PERITONEUM
  13. VINCRISTINE [Suspect]
     Active Substance: VINCRISTINE
     Indication: METASTASES TO PERITONEUM

REACTIONS (2)
  - Haematotoxicity [Unknown]
  - Diarrhoea [Unknown]
